FAERS Safety Report 15839689 (Version 1)
Quarter: 2019Q1

REPORT INFORMATION
  Report Type: Spontaneous
  Country: US (occurrence: US)
  Receive Date: 20190117
  Receipt Date: 20190117
  Transmission Date: 20190417
  Serious: No
  Sender: FDA-Public Use
  Company Number: US-PFIZER INC-2019022397

PATIENT
  Sex: Female

DRUGS (1)
  1. LYRICA [Suspect]
     Active Substance: PREGABALIN
     Dosage: 200 MG, 1X/DAY (SHE TOOK ONE AT 8PM)

REACTIONS (4)
  - Drug intolerance [Unknown]
  - Dysarthria [Unknown]
  - Feeling drunk [Unknown]
  - Gait disturbance [Unknown]
